FAERS Safety Report 8591545-1 (Version None)
Quarter: 2012Q3

REPORT INFORMATION
  Report Type: 
  Country: None (occurrence: None)
  Receive Date: 20120814
  Receipt Date: 20120809
  Transmission Date: 20120928
  Serious: No
  Sender: FDA-Public Use
  Company Number: US-PFIZER INC-2012195243

PATIENT
  Age: 74 Year
  Sex: Female
  Weight: 64.399 kg

DRUGS (2)
  1. CELEBREX [Suspect]
     Indication: ARTHRITIS
     Dosage: 200 MG, 1X/DAY
     Route: 048
     Dates: start: 20120704, end: 20120801
  2. METHIMAZOLE [Concomitant]
     Indication: HYPERTHYROIDISM
     Dosage: 10 MG, UNK

REACTIONS (3)
  - FAECES DISCOLOURED [None]
  - ARTHRALGIA [None]
  - ABNORMAL FAECES [None]
